FAERS Safety Report 8996987 (Version 1)
Quarter: 2013Q1

REPORT INFORMATION
  Report Type: Report from Study
  Country: US (occurrence: US)
  Receive Date: 20130104
  Receipt Date: 20130104
  Transmission Date: 20140127
  Serious: Yes (Hospitalization)
  Sender: FDA-Public Use
  Company Number: US-ELI_LILLY_AND_COMPANY-US201212007939

PATIENT
  Age: 48 Year
  Sex: Female
  Weight: 73.42 kg

DRUGS (13)
  1. GEMCITABINE HYDROCHLORIDE [Suspect]
     Indication: RENAL CELL CARCINOMA
     Dosage: 2680 MG, EVERY TWO WEEKS
     Route: 042
     Dates: start: 20100811
  2. OTHER PHARMA COMPANY INV DRUG [Suspect]
     Indication: RENAL CELL CARCINOMA
     Dosage: 5 MG, BID
     Route: 048
     Dates: start: 20100216
  3. OTHER PHARMA COMPANY INV DRUG [Suspect]
     Dosage: 10 MG, BID
     Dates: start: 20100316, end: 20100725
  4. DOXORUBICIN HYDROCHLORIDE [Suspect]
     Indication: RENAL CELL CARCINOMA
     Dosage: 2680 MG, EVERY TWO WEEKS
     Route: 042
     Dates: start: 20100811
  5. NEULASTA [Concomitant]
     Dosage: 6 MG, UNK
     Route: 058
     Dates: start: 20100813
  6. ALPRAZOLAM [Concomitant]
     Indication: ANXIETY
     Dosage: UNK
     Dates: start: 20090918
  7. VAGIFEM [Concomitant]
     Indication: VULVOVAGINAL DISCOMFORT
     Dosage: UNK
     Dates: start: 20081001
  8. EFFEXOR [Concomitant]
     Indication: DEPRESSION
     Dosage: UNK
     Dates: start: 20100608
  9. NEXIUM [Concomitant]
     Indication: GASTROOESOPHAGEAL REFLUX DISEASE
     Dosage: UNK
     Dates: start: 20100608
  10. HYDROCODONE [Concomitant]
     Indication: PAIN
     Dosage: UNK
     Dates: start: 20100619
  11. MIRALAX [Concomitant]
     Dosage: UNK
     Dates: start: 20100721
  12. DEXAMETHASONE [Concomitant]
     Indication: BACK PAIN
     Dosage: UNK
     Dates: start: 20100805, end: 20100816
  13. ACTIQ [Concomitant]
     Indication: BACK PAIN
     Dosage: UNK
     Dates: start: 20100811, end: 20100817

REACTIONS (2)
  - Dehydration [Recovered/Resolved]
  - Neutropenia [Recovered/Resolved]
